FAERS Safety Report 8589824-7 (Version None)
Quarter: 2012Q3

REPORT INFORMATION
  Report Type: 
  Country: None (occurrence: None)
  Receive Date: 20120813
  Receipt Date: 20120730
  Transmission Date: 20120928
  Serious: Yes (Life-Threatening)
  Sender: FDA-Public Use
  Company Number: FR-MYLANLABS-2012S1016101

PATIENT
  Age: 55 Year
  Sex: Female

DRUGS (1)
  1. DILTIAZEM [Suspect]
     Indication: SUICIDE ATTEMPT
     Dosage: CONTROLLED-RELEASE
     Route: 048

REACTIONS (7)
  - INTENTIONAL OVERDOSE [None]
  - SUICIDE ATTEMPT [None]
  - CARDIOGENIC SHOCK [None]
  - TOXICITY TO VARIOUS AGENTS [None]
  - METABOLIC ACIDOSIS [None]
  - DIALYSIS [None]
  - RENAL FAILURE ACUTE [None]
